FAERS Safety Report 8846866 (Version 1)
Quarter: 2012Q4

REPORT INFORMATION
  Report Type: Spontaneous
  Country: US (occurrence: None)
  Receive Date: 20121016
  Receipt Date: 20121016
  Transmission Date: 20130627
  Serious: Yes (Disabling, Other)
  Sender: FDA-Public Use
  Company Number: US-BANPHARM-20120216

PATIENT
  Age: 79 Year
  Sex: Male
  Weight: 85.27 kg

DRUGS (3)
  1. ALEVE LIQUID GELS 220 MG [Suspect]
     Indication: PAIN
     Dosage: 1 capsule Oral
     Route: 048
     Dates: start: 20120921, end: 20120921
  2. METFORMIN [Concomitant]
  3. LOSARTAN POTASSIUM [Concomitant]

REACTIONS (6)
  - Vomiting [None]
  - Fall [None]
  - Movement disorder [None]
  - Blood pressure decreased [None]
  - Asthenia [None]
  - Eye pain [None]
